FAERS Safety Report 8823387 (Version 1)
Quarter: 2012Q4

REPORT INFORMATION
  Report Type: 
  Country: NL (occurrence: NL)
  Receive Date: 20121003
  Receipt Date: 20121003
  Transmission Date: 20130627
  Serious: Yes (Other)
  Sender: FDA-Public Use
  Company Number: NL-009507513-1209NLD011239

PATIENT
  Sex: Male

DRUGS (3)
  1. SAFLUTAN [Suspect]
     Dosage: 1 pipette daily
     Route: 047
  2. SAFLUTAN [Suspect]
     Dosage: 3 pipettes daily
     Route: 047
  3. COSOPT [Suspect]
     Dosage: 2 pipettes a day

REACTIONS (3)
  - Intraocular pressure increased [Unknown]
  - Drug ineffective [Unknown]
  - Overdose [Unknown]
